FAERS Safety Report 6204026-7 (Version None)
Quarter: 2009Q2

REPORT INFORMATION
  Report Type: 
  Country: None (occurrence: None)
  Receive Date: 20090526
  Receipt Date: 20090526
  Transmission Date: 20091009
  Serious: Yes (Hospitalization, Other)
  Sender: FDA-Public Use
  Company Number: None

PATIENT
  Age: 59 Year
  Sex: Female
  Weight: 66.6788 kg

DRUGS (1)
  1. HYDROCODONE BITARTRATE + ACETAMINOPHEN [Suspect]
     Indication: HIP ARTHROPLASTY
     Dosage: 5MG/500MG 1-2 TABS Q 4 HR PR PO
     Route: 048
     Dates: start: 20090321, end: 20090331

REACTIONS (9)
  - ABDOMINAL PAIN UPPER [None]
  - ANXIETY [None]
  - BURNING SENSATION [None]
  - DYSURIA [None]
  - HYPOPHAGIA [None]
  - NAUSEA [None]
  - NO THERAPEUTIC RESPONSE [None]
  - POLLAKIURIA [None]
  - PULMONARY EMBOLISM [None]
